FAERS Safety Report 19872174 (Version 1)
Quarter: 2021Q3

REPORT INFORMATION
  Report Type: Spontaneous
  Country: US (occurrence: US)
  Receive Date: 20210921
  Receipt Date: 20210921
  Transmission Date: 20211014
  Serious: Yes (Hospitalization)
  Sender: FDA-Public Use
  Company Number: None

PATIENT
  Age: 81 Year
  Sex: Female

DRUGS (1)
  1. AMBRISENTAN 5 MG TAB [Suspect]
     Active Substance: AMBRISENTAN
     Route: 048
     Dates: start: 20210615

REACTIONS (3)
  - Blood pressure abnormal [None]
  - Therapy interrupted [None]
  - Dyspnoea [None]

NARRATIVE: CASE EVENT DATE: 20210819
